FAERS Safety Report 10230856 (Version 1)
Quarter: 2014Q2

REPORT INFORMATION
  Report Type: Report from Study
  Country: US (occurrence: US)
  Receive Date: 20140611
  Receipt Date: 20140611
  Transmission Date: 20141212
  Serious: Yes (Hospitalization)
  Sender: FDA-Public Use
  Company Number: US-SA-2014SA072608

PATIENT
  Age: 66 Year
  Sex: Female

DRUGS (2)
  1. LANTUS SOLOSTAR [Suspect]
     Indication: DIABETES MELLITUS
     Dosage: DAILY AT?9:00PM DOSE:38 UNIT(S)
     Route: 065
  2. SOLOSTAR [Concomitant]

REACTIONS (1)
  - Lung neoplasm malignant [Unknown]
